FAERS Safety Report 23545314 (Version 1)
Quarter: 2024Q1

REPORT INFORMATION
  Report Type: Spontaneous
  Country: CN (occurrence: CN)
  Receive Date: 20240220
  Receipt Date: 20240220
  Transmission Date: 20240410
  Serious: Yes (Hospitalization)
  Sender: FDA-Public Use
  Company Number: CN-PFIZER INC-PV202400022862

PATIENT
  Age: 58 Year
  Sex: Female
  Weight: 56 kg

DRUGS (3)
  1. EPIRUBICIN HYDROCHLORIDE [Suspect]
     Active Substance: EPIRUBICIN HYDROCHLORIDE
     Indication: Neoplasm of thymus
     Dosage: 40 MG, EVERY 3 WEEKS
     Route: 041
     Dates: start: 20240203, end: 20240203
  2. CYCLOPHOSPHAMIDE [Suspect]
     Active Substance: CYCLOPHOSPHAMIDE
     Indication: Neoplasm of thymus
     Dosage: 0.7 G, EVERY 3 WEEKS
     Route: 041
     Dates: start: 20240203, end: 20240203
  3. CISPLATIN [Suspect]
     Active Substance: CISPLATIN
     Indication: Neoplasm of thymus
     Dosage: 40 MG, EVERY 3 WEEKS
     Route: 041
     Dates: start: 20240203, end: 20240203

REACTIONS (2)
  - Eosinophil count decreased [Unknown]
  - Off label use [Unknown]

NARRATIVE: CASE EVENT DATE: 20240203
